FAERS Safety Report 6538825-9 (Version None)
Quarter: 2010Q1

REPORT INFORMATION
  Report Type: 
  Country: None (occurrence: None)
  Receive Date: 20100114
  Receipt Date: 20100114
  Transmission Date: 20100710
  Serious: Yes (Life-Threatening, Hospitalization)
  Sender: FDA-Public Use
  Company Number: None

PATIENT
  Sex: Female
  Weight: 64.3 kg

DRUGS (11)
  1. GEMZAR [Suspect]
     Indication: PANCREATIC CARCINOMA
     Dosage: 30MG/M2
     Dates: start: 20090522, end: 20091223
  2. OXALIPLATIN [Suspect]
     Indication: PANCREATIC CARCINOMA
     Dosage: 60MG/M2, 85MG/M2
     Dates: start: 20091101, end: 20091223
  3. OXALIPLATIN [Suspect]
     Indication: PANCREATIC CARCINOMA
     Dosage: 60MG/M2, 85MG/M2
     Dates: start: 20090709
  4. LOVENOX [Concomitant]
  5. METHADONE [Concomitant]
  6. OXYCODONE [Concomitant]
  7. PRILOSEC [Concomitant]
  8. PANCREATIC ENZYMES [Concomitant]
  9. SPIRONOLACTONE [Concomitant]
  10. LASIX [Concomitant]
  11. PROMETHAZINE [Concomitant]

REACTIONS (15)
  - ABDOMINAL PAIN [None]
  - ASTHENIA [None]
  - BACTERIAL INFECTION [None]
  - CARDIOVASCULAR DISORDER [None]
  - DISEASE PROGRESSION [None]
  - HEPATIC ARTERY THROMBOSIS [None]
  - HEPATIC INFARCTION [None]
  - HYPOTENSION [None]
  - IMMUNOSUPPRESSION [None]
  - LIVER ABSCESS [None]
  - MENTAL STATUS CHANGES [None]
  - PORTAL VEIN THROMBOSIS [None]
  - PROCEDURAL COMPLICATION [None]
  - SEPSIS [None]
  - VENOUS INSUFFICIENCY [None]
